FAERS Safety Report 8708929 (Version 3)
Quarter: 2014Q2

REPORT INFORMATION
  Report Type: Spontaneous
  Country: US (occurrence: US)
  Receive Date: 20120806
  Receipt Date: 20140408
  Transmission Date: 20141212
  Serious: Yes (Disabling)
  Sender: FDA-Public Use
  Company Number: US-MERCK-1207HRV010801

PATIENT
  Age: 38 Year
  Sex: Male

DRUGS (1)
  1. FINASTERIDE [Suspect]
     Indication: ALOPECIA
     Dosage: UNK, QD
     Route: 048
     Dates: start: 2008, end: 200907

REACTIONS (20)
  - Mental impairment [Unknown]
  - Feminisation acquired [Unknown]
  - Drug ineffective [Unknown]
  - Depression [Recovered/Resolved]
  - Erectile dysfunction [Not Recovered/Not Resolved]
  - Penis disorder [Unknown]
  - Cognitive disorder [Unknown]
  - Suicidal ideation [Unknown]
  - Anxiety [Not Recovered/Not Resolved]
  - Panic attack [Unknown]
  - Impaired work ability [Unknown]
  - Homeless [Unknown]
  - Social problem [Unknown]
  - Gender identity disorder [Unknown]
  - Hormone level abnormal [Unknown]
  - Disturbance in attention [Unknown]
  - Loss of libido [Unknown]
  - Sluggishness [Unknown]
  - Memory impairment [Unknown]
  - Pain [Unknown]
